FAERS Safety Report 7720668-1 (Version None)
Quarter: 2011Q3

REPORT INFORMATION
  Report Type: 
  Country: None (occurrence: None)
  Receive Date: 20110831
  Receipt Date: 20110823
  Transmission Date: 20111222
  Serious: Yes (Hospitalization, Other)
  Sender: FDA-Public Use
  Company Number: PHEH2010US00473

PATIENT
  Sex: Female

DRUGS (34)
  1. ZOMETA [Suspect]
  2. HEPARIN [Concomitant]
  3. TAMOXIFEN CITRATE [Concomitant]
  4. CEFOXITIN [Concomitant]
     Dosage: 2 MG, UNK
  5. MOTRIN [Concomitant]
     Dosage: 600 MG, UNK
  6. XELODA [Concomitant]
     Dosage: 1000 MG, BID
     Route: 048
  7. BISACODYL [Concomitant]
     Dosage: 10 MG, UNK
  8. ZOLADEX [Concomitant]
  9. FLAGYL [Concomitant]
     Dosage: 500 MG, UNK
  10. DEMEROL [Concomitant]
     Dosage: 50 MG, UNK
  11. DEXAMETHASONE [Concomitant]
     Dosage: 120 MG, UNK
  12. COMPAZINE [Concomitant]
     Dosage: 5 MG, UNK
     Route: 048
  13. DOXYCYCLINE [Concomitant]
     Dosage: 100 MG, UNK
  14. PERCOCET [Concomitant]
  15. TORADOL [Concomitant]
     Dosage: 30 MG, UNK
  16. AMBIEN [Concomitant]
     Dosage: 10 MG, UNK
  17. COLACE [Concomitant]
     Dosage: ONE CAPSULE DAILY
     Route: 048
  18. METRONIDAZOLE [Concomitant]
     Dosage: 500 MG, UNK
  19. TYLENOL-500 [Concomitant]
     Dosage: 650 MG, UNK
     Route: 048
  20. OXYCONTIN [Concomitant]
     Dosage: 20 MG, UNK
     Route: 048
  21. PHENERGAN HCL [Concomitant]
     Dosage: 12.5 MG, UNK
  22. ANZEMET [Concomitant]
     Dosage: 100 MG, UNK
  23. VALIUM [Concomitant]
     Dosage: 5 MG, UNK
     Route: 048
  24. ZOFRAN [Concomitant]
     Dosage: 4 MG, UNK
  25. NALOXONE [Concomitant]
     Dosage: UNK
  26. CEFTIZOXIME SODIUM [Concomitant]
  27. TEMAZEPAM [Concomitant]
  28. ATIVAN [Concomitant]
     Dosage: 2 MG, UNK
  29. CARISOPRODOL [Concomitant]
     Dosage: 350 MG, UNK
  30. DULCOLAX [Concomitant]
  31. MORPHINE SULFATE [Concomitant]
     Dosage: UNK
  32. SOMA [Concomitant]
     Dosage: 350 MG, UNK
     Route: 048
  33. AUGMENTIN '125' [Concomitant]
     Dosage: 500 MG, UNK
  34. LIDOCAINE [Concomitant]

REACTIONS (32)
  - DECREASED INTEREST [None]
  - SEPSIS [None]
  - PLEURAL EFFUSION [None]
  - OSTEOLYSIS [None]
  - BONE LESION [None]
  - BREAST CANCER [None]
  - DEHYDRATION [None]
  - THROMBOCYTOPENIA [None]
  - PAIN [None]
  - ANXIETY [None]
  - ENDOMETRIAL HYPERPLASIA [None]
  - UTERINE FIBROSIS [None]
  - INTERVERTEBRAL DISC PROTRUSION [None]
  - FALL [None]
  - LOBAR PNEUMONIA [None]
  - PERICARDIAL CYST [None]
  - OSTEONECROSIS OF JAW [None]
  - GENERAL PHYSICAL HEALTH DETERIORATION [None]
  - HYPOTENSION [None]
  - RASH [None]
  - POSTMENOPAUSAL HAEMORRHAGE [None]
  - LIGAMENT SPRAIN [None]
  - METASTASES TO BONE [None]
  - PELVIC ABSCESS [None]
  - HEPATITIS C [None]
  - HAND FRACTURE [None]
  - HYPONATRAEMIA [None]
  - CHEST PAIN [None]
  - LUNG INFILTRATION [None]
  - BACK PAIN [None]
  - MUSCLE STRAIN [None]
  - PAIN IN EXTREMITY [None]
